FAERS Safety Report 8821320 (Version 1)
Quarter: 2012Q4

REPORT INFORMATION
  Report Type: 
  Country: DK (occurrence: DK)
  Receive Date: 20121002
  Receipt Date: 20121002
  Transmission Date: 20130627
  Serious: Yes (Other)
  Sender: FDA-Public Use
  Company Number: DK-BAXTER-2012BAX018173

PATIENT
  Sex: Male

DRUGS (2)
  1. IMMUNE GLOBULIN NOS [Suspect]
     Indication: BLOOD DISORDER NOS
     Dosage: Dosage Form: Unspecified
     Route: 065
  2. VERMOX [Suspect]
     Indication: WORMS
     Route: 048

REACTIONS (3)
  - Neutrophil count decreased [Unknown]
  - Pharyngeal erythema [Unknown]
  - Influenza like illness [Unknown]
